FAERS Safety Report 7242036-1 (Version None)
Quarter: 2011Q1

REPORT INFORMATION
  Report Type: 
  Country: None (occurrence: None)
  Receive Date: 20110124
  Receipt Date: 20110113
  Transmission Date: 20110831
  Serious: Yes (Death, Hospitalization)
  Sender: FDA-Public Use
  Company Number: BE-PERRIGO-11BE000283

PATIENT
  Age: 33 Year
  Sex: Female
  Weight: 60 kg

DRUGS (5)
  1. IBUPROFEN [Suspect]
     Indication: PRODUCT USED FOR UNKNOWN INDICATION
     Dosage: 8000 MG, SINGLE
     Route: 048
  2. DICLOFENAC [Interacting]
     Indication: PRODUCT USED FOR UNKNOWN INDICATION
     Dosage: 1 G, SINGLE
     Route: 048
  3. ATORVASTATIN [Interacting]
     Indication: PRODUCT USED FOR UNKNOWN INDICATION
     Dosage: 100 MG, SINGLE
     Route: 048
  4. COLCHICINE [Interacting]
     Indication: PRODUCT USED FOR UNKNOWN INDICATION
     Dosage: 20 MG, SINGLE
     Route: 048
  5. FUROSEMIDE [Interacting]
     Indication: PRODUCT USED FOR UNKNOWN INDICATION
     Dosage: 400 MG, SINGLE
     Route: 048

REACTIONS (22)
  - HEPATIC FAILURE [None]
  - HYPOXIA [None]
  - ILEUS [None]
  - GASTROINTESTINAL HAEMORRHAGE [None]
  - DRUG INTERACTION [None]
  - HYPERAMMONAEMIC ENCEPHALOPATHY [None]
  - HYPERTRIGLYCERIDAEMIA [None]
  - MULTIPLE DRUG OVERDOSE [None]
  - PULMONARY ALVEOLAR HAEMORRHAGE [None]
  - ACUTE LUNG INJURY [None]
  - SEPSIS [None]
  - MULTI-ORGAN FAILURE [None]
  - SHOCK HAEMORRHAGIC [None]
  - CONVULSION [None]
  - RHABDOMYOLYSIS [None]
  - RENAL FAILURE ACUTE [None]
  - DIARRHOEA [None]
  - CARDIAC ARREST [None]
  - BRAIN OEDEMA [None]
  - HYPOTENSION [None]
  - ENTEROCOLITIS [None]
  - PANCYTOPENIA [None]
